FAERS Safety Report 10035361 (Version 1)
Quarter: 2014Q1

REPORT INFORMATION
  Report Type: Spontaneous
  Country: US (occurrence: None)
  Receive Date: 20140306
  Receipt Date: 20140306
  Transmission Date: 20141002
  Serious: Yes (Hospitalization)
  Sender: FDA-Public Use
  Company Number: 163-21880-13011536

PATIENT
  Age: 61 Year
  Sex: Male
  Weight: 67.13 kg

DRUGS (10)
  1. REVLIMID [Suspect]
     Indication: PLASMA CELL MYELOMA
     Dosage: 25 MG, 1 IN 1 D, PO 03/16/2008 - UNKNOWN THERAPY DATES
     Route: 048
     Dates: start: 20080316
  2. ASPIRIN (ACETYLSALICYLIC ACID) [Concomitant]
  3. CALCIUM CITRATE [Concomitant]
  4. DRONABINOL [Concomitant]
  5. NORCO (VICODIN) [Concomitant]
  6. ONDANSETRON [Concomitant]
  7. PRILOSEC (OMEPRAZOLE) [Concomitant]
  8. PROCHLORPERAZINE [Concomitant]
  9. SIMVASTATIN [Concomitant]
  10. VALACYCLOVIR [Concomitant]

REACTIONS (4)
  - Vomiting [None]
  - Diarrhoea [None]
  - Increased upper airway secretion [None]
  - Dehydration [None]
